FAERS Safety Report 9732511 (Version 2)
Quarter: 2013Q4

REPORT INFORMATION
  Report Type: Spontaneous
  Country: BR (occurrence: BR)
  Receive Date: 20131205
  Receipt Date: 20131230
  Transmission Date: 20140711
  Serious: Yes (Other)
  Sender: FDA-Public Use
  Company Number: BR-JNJFOC-20131118470

PATIENT
  Sex: Female

DRUGS (1)
  1. ULTRACET [Suspect]
     Indication: SCIATICA
     Route: 065

REACTIONS (13)
  - Blood pressure decreased [Unknown]
  - Dizziness [Unknown]
  - Dyspnoea [Unknown]
  - Mental disorder [Unknown]
  - Vertigo [Unknown]
  - Nightmare [Unknown]
  - Vomiting [Unknown]
  - Pruritus [Unknown]
  - Constipation [Unknown]
  - Fluid retention [Unknown]
  - Nausea [Not Recovered/Not Resolved]
  - Feeling hot [Unknown]
  - Somnolence [Unknown]
